FAERS Safety Report 4630399-2 (Version None)
Quarter: 2005Q2

REPORT INFORMATION
  Report Type: 
  Country: None (occurrence: None)
  Receive Date: 20050408
  Receipt Date: 20050210
  Transmission Date: 20051028
  Serious: Yes (Other)
  Sender: FDA-Public Use
  Company Number: DEWYE413610FEB05

PATIENT
  Sex: Female

DRUGS (4)
  1. ENBREL [Suspect]
     Indication: RHEUMATOID ARTHRITIS
     Dosage: UNKNOWN
     Route: 058
  2. ARCOXIA [Suspect]
     Route: 048
     Dates: start: 20050117, end: 20050208
  3. LANTAREL [Concomitant]
     Dates: start: 20040101
  4. HYDERGINA [Concomitant]
     Dates: start: 20041212

REACTIONS (2)
  - DERMATITIS BULLOUS [None]
  - PAIN [None]
